FAERS Safety Report 7562244-X (Version None)
Quarter: 2011Q2

REPORT INFORMATION
  Report Type: 
  Country: None (occurrence: None)
  Receive Date: 20110622
  Receipt Date: 20110608
  Transmission Date: 20111010
  Serious: Yes (Other)
  Sender: FDA-Public Use
  Company Number: CA-JNJFOC-20110605667

PATIENT
  Sex: Male
  Weight: 113.6 kg

DRUGS (4)
  1. IMURAN [Concomitant]
     Route: 048
  2. REMICADE [Suspect]
     Indication: CROHN'S DISEASE
     Dosage: ALTERNATING DOSE OF 600/500MG EVERY 6 WEEKS
     Route: 042
     Dates: start: 20060511
  3. PERCOCET [Concomitant]
     Route: 065
  4. OXYCODONE HCL [Concomitant]
     Route: 065

REACTIONS (1)
  - HYPOAESTHESIA [None]
